FAERS Safety Report 8732501 (Version 2)
Quarter: 2012Q4

REPORT INFORMATION
  Report Type: Report from Study
  Country: DE (occurrence: DE)
  Receive Date: 20120820
  Receipt Date: 20120904
  Transmission Date: 20130627
  Serious: Yes (Hospitalization)
  Sender: FDA-Public Use
  Company Number: DE-ROCHE-1100034

PATIENT
  Age: 76 Year
  Sex: Male
  Weight: 95 kg

DRUGS (5)
  1. AVASTIN [Suspect]
     Indication: RECTAL CANCER METASTATIC
     Route: 042
     Dates: start: 20120229, end: 20120704
  2. XELODA [Suspect]
     Indication: RECTAL CANCER METASTATIC
     Route: 048
     Dates: start: 20120229, end: 20120711
  3. IRINOTECAN HYDROCHLORIDE [Suspect]
     Indication: RECTAL CANCER METASTATIC
     Route: 042
     Dates: start: 20120229, end: 20120711
  4. GRANISETRON HYDROCHLORIDE [Suspect]
     Indication: RECTAL CANCER METASTATIC
     Route: 042
     Dates: start: 20120229, end: 20120711
  5. ATROPINE [Suspect]
     Indication: RECTAL CANCER METASTATIC
     Route: 058
     Dates: start: 20120229, end: 20120711

REACTIONS (2)
  - Internal hernia [Recovered/Resolved]
  - Impaired healing [Recovered/Resolved]
